FAERS Safety Report 5874193-3 (Version None)
Quarter: 2008Q3

REPORT INFORMATION
  Report Type: 
  Country: None (occurrence: None)
  Receive Date: 20080908
  Receipt Date: 20080829
  Transmission Date: 20090109
  Serious: Yes (Other)
  Sender: FDA-Public Use
  Company Number: JP-BAXTER-2008BH009271

PATIENT
  Sex: Female

DRUGS (2)
  1. PROTENATE [Suspect]
     Indication: INTRAPARTUM HAEMORRHAGE
     Dosage: DOSE UNIT:UNKNOWN
     Route: 065
  2. PROTENATE [Suspect]
     Dosage: DOSE UNIT:UNKNOWN
     Route: 065

REACTIONS (1)
  - HEPATITIS B ANTIBODY POSITIVE [None]
